FAERS Safety Report 9845671 (Version 2)
Quarter: 2014Q2

REPORT INFORMATION
  Report Type: Spontaneous
  Country: US (occurrence: US)
  Receive Date: 20140127
  Receipt Date: 20140408
  Transmission Date: 20141212
  Serious: No
  Sender: FDA-Public Use
  Company Number: US-TEVA-458631USA

PATIENT
  Age: 36 Year
  Sex: Female
  Weight: 78.09 kg

DRUGS (2)
  1. PARAGARD 380A [Suspect]
     Indication: CONTRACEPTION
     Route: 015
     Dates: start: 20100329, end: 20131205
  2. PARAGARD 380A [Suspect]
     Route: 015
     Dates: start: 20131205

REACTIONS (2)
  - Abdominal distension [Recovered/Resolved]
  - Weight increased [Recovered/Resolved]
